FAERS Safety Report 20859043 (Version 2)
Quarter: 2022Q2

REPORT INFORMATION
  Report Type: Report from Study
  Country: ES (occurrence: ES)
  Receive Date: 20220523
  Receipt Date: 20220609
  Transmission Date: 20220720
  Serious: Yes (Disabling, Other)
  Sender: FDA-Public Use
  Company Number: ES-AUROBINDO-AUR-APL-2022-018288

PATIENT
  Age: 53 Year
  Sex: Male

DRUGS (3)
  1. BUPIVACAINE [Suspect]
     Active Substance: BUPIVACAINE
     Indication: Nerve block
     Dosage: UNK
     Route: 047
  2. HYALURONIDASE [Suspect]
     Active Substance: HYALURONIDASE
     Indication: Nerve block
     Dosage: 150 INTERNATIONAL UNIT
     Route: 047
  3. LIDOCAINE [Suspect]
     Active Substance: LIDOCAINE
     Indication: Nerve block
     Dosage: 4 MILLILITER
     Route: 047

REACTIONS (1)
  - Acute macular neuroretinopathy [Recovered/Resolved with Sequelae]
